FAERS Safety Report 5025605-9 (Version None)
Quarter: 2006Q2

REPORT INFORMATION
  Report Type: 
  Country: None (occurrence: None)
  Receive Date: 20060426
  Receipt Date: 20060213
  Transmission Date: 20061013
  Serious: Yes (Other)
  Sender: FDA-Public Use
  Company Number: 2006021677

PATIENT
  Age: 59 Year
  Sex: Female
  Weight: 53.978 kg

DRUGS (5)
  1. LYRICA [Suspect]
     Indication: PARAESTHESIA
     Dosage: 140 MG (1 IN 1 D)
     Dates: start: 20050701
  2. CYMBALTA [Concomitant]
  3. PREMARIN [Concomitant]
  4. KLONOPIN [Concomitant]
  5. ZOMIG [Concomitant]

REACTIONS (1)
  - WHITE BLOOD CELL COUNT DECREASED [None]
